FAERS Safety Report 8567613-7 (Version None)
Quarter: 2012Q3

REPORT INFORMATION
  Report Type: 
  Country: None (occurrence: None)
  Receive Date: 20120803
  Receipt Date: 20120726
  Transmission Date: 20120928
  Serious: Yes (Other)
  Sender: FDA-Public Use
  Company Number: US-ELI_LILLY_AND_COMPANY-US201207008414

PATIENT
  Sex: Female

DRUGS (3)
  1. MAGNESIUM [Concomitant]
     Dosage: UNK
  2. SYNTHROID [Concomitant]
     Dosage: UNK
  3. FORTEO [Suspect]
     Indication: OSTEOPOROSIS
     Dosage: 20 UG, QD
     Dates: start: 20120201

REACTIONS (6)
  - MUSCULAR WEAKNESS [None]
  - EPISTAXIS [None]
  - MULTIPLE MYELOMA [None]
  - ASTHENIA [None]
  - MALAISE [None]
  - HAEMORRHAGIC DIATHESIS [None]
